FAERS Safety Report 8381018-3 (Version None)
Quarter: 2012Q2

REPORT INFORMATION
  Report Type: 
  Country: None (occurrence: None)
  Receive Date: 20120522
  Receipt Date: 20110606
  Transmission Date: 20120825
  Serious: No
  Sender: FDA-Public Use
  Company Number: 2011-03289

PATIENT
  Age: 74 Year
  Sex: Female

DRUGS (5)
  1. THERACYS [Suspect]
     Indication: BLADDER CANCER
     Dates: start: 20110501, end: 20110501
  2. POTASSIUM CHLORIDE [Concomitant]
  3. AMBIEN [Concomitant]
  4. DIOVAN HCT [Concomitant]
  5. CARDIZEM [Concomitant]

REACTIONS (1)
  - FAECES DISCOLOURED [None]
